FAERS Safety Report 15007816 (Version 3)
Quarter: 2018Q3

REPORT INFORMATION
  Report Type: Spontaneous
  Country: US (occurrence: US)
  Receive Date: 20180613
  Receipt Date: 20180725
  Transmission Date: 20181010
  Serious: Yes (Other)
  Sender: FDA-Public Use
  Company Number: US-VIFOR (INTERNATIONAL) INC.-VIT-2018-05507

PATIENT
  Sex: Male

DRUGS (11)
  1. AMLODIPINE BESILATE [Concomitant]
     Active Substance: AMLODIPINE BESYLATE
  2. LASIX [Concomitant]
     Active Substance: FUROSEMIDE
  3. ERGOCALCIFEROL. [Concomitant]
     Active Substance: ERGOCALCIFEROL
  4. VELTASSA [Suspect]
     Active Substance: PATIROMER
     Indication: HYPERKALAEMIA
     Route: 048
     Dates: start: 20180403, end: 201805
  5. SODIUM BICARBONATE. [Concomitant]
     Active Substance: SODIUM BICARBONATE
  6. VELTASSA [Suspect]
     Active Substance: PATIROMER
     Dates: start: 201801
  7. HUMALOG KWIKPEN [Concomitant]
     Active Substance: INSULIN LISPRO
  8. ATORVASTATIN CALCIUM. [Concomitant]
     Active Substance: ATORVASTATIN CALCIUM
  9. LANTUS [Concomitant]
     Active Substance: INSULIN GLARGINE
  10. CALCIUM ACETATE. [Concomitant]
     Active Substance: CALCIUM ACETATE
  11. CALCITRIOL. [Concomitant]
     Active Substance: CALCITRIOL

REACTIONS (1)
  - Dialysis [Unknown]

NARRATIVE: CASE EVENT DATE: 2018
